FAERS Safety Report 5080153-5 (Version None)
Quarter: 2006Q3

REPORT INFORMATION
  Report Type: 
  Country: None (occurrence: None)
  Receive Date: 20060815
  Receipt Date: 20060803
  Transmission Date: 20061208
  Serious: Yes (Hospitalization)
  Sender: FDA-Public Use
  Company Number: US-AMGEN-US189033

PATIENT
  Sex: Male
  Weight: 89.9 kg

DRUGS (6)
  1. PROCRIT [Suspect]
     Indication: ANAEMIA
     Dates: start: 20060701
  2. PEGASYS [Concomitant]
  3. RIBAVIRIN [Concomitant]
  4. VALIUM [Concomitant]
  5. IRON [Concomitant]
     Route: 048
  6. ASCORBIC ACID [Concomitant]

REACTIONS (2)
  - CONDITION AGGRAVATED [None]
  - MENIERE'S DISEASE [None]
